FAERS Safety Report 9305023 (Version 2)
Quarter: 2014Q2

REPORT INFORMATION
  Report Type: Report from Study
  Country: US (occurrence: US)
  Receive Date: 20130523
  Receipt Date: 20140527
  Transmission Date: 20141212
  Serious: Yes (Death, Hospitalization, Other)
  Sender: FDA-Public Use
  Company Number: US-SANOFI-AVENTIS-2013SA051109

PATIENT
  Age: 61 Year
  Sex: Female

DRUGS (4)
  1. LANTUS [Suspect]
     Indication: TYPE 2 DIABETES MELLITUS
     Dosage: DOSE:75 UNIT(S)
     Route: 058
     Dates: start: 201102
  2. APIDRA [Suspect]
     Indication: TYPE 2 DIABETES MELLITUS
     Dosage: DOSE:35 UNIT(S)
     Route: 058
     Dates: start: 201102
  3. ATENOLOL [Concomitant]
  4. ANTITHROMBOTIC AGENTS [Concomitant]

REACTIONS (8)
  - Death [Fatal]
  - Cardiac disorder [Not Recovered/Not Resolved]
  - Renal disorder [Recovered/Resolved]
  - Cerebrovascular accident [Recovered/Resolved]
  - Dysarthria [Recovered/Resolved]
  - Pain in extremity [Recovered/Resolved]
  - Burns third degree [Unknown]
  - Blood glucose increased [Recovered/Resolved]
